FAERS Safety Report 20968550 (Version 1)
Quarter: 2022Q2

REPORT INFORMATION
  Report Type: Report from Study
  Country: FR (occurrence: FR)
  Receive Date: 20220616
  Receipt Date: 20220616
  Transmission Date: 20220721
  Serious: Yes (Other)
  Sender: FDA-Public Use
  Company Number: FR-BAXTER-2022BAX010076

PATIENT
  Sex: Female

DRUGS (9)
  1. DOXORUBICIN [Suspect]
     Active Substance: DOXORUBICIN
     Indication: Non-Hodgkin^s lymphoma
     Dosage: UNK, CYCLICAL
     Route: 065
  2. CYCLOPHOSPHAMIDE [Suspect]
     Active Substance: CYCLOPHOSPHAMIDE
     Indication: Non-Hodgkin^s lymphoma
     Dosage: 4 CYCLES OF R-ACVBP
     Route: 065
  3. VINBLASTINE [Suspect]
     Active Substance: VINBLASTINE
     Indication: Non-Hodgkin^s lymphoma
     Dosage: 1 CYCLE OF ABVD
     Route: 065
  4. BLEOMYCIN SULFATE [Suspect]
     Active Substance: BLEOMYCIN SULFATE
     Indication: Non-Hodgkin^s lymphoma
     Dosage: 1 CYCLE OF ABVD
     Route: 065
  5. BLEOMYCIN SULFATE [Suspect]
     Active Substance: BLEOMYCIN SULFATE
     Dosage: 4 CYCLES OF R-ACVBP
     Route: 065
  6. DACARBAZINE [Suspect]
     Active Substance: DACARBAZINE
     Indication: Non-Hodgkin^s lymphoma
     Dosage: 1 CYCLE OF ABVD
     Route: 065
  7. VINDESINE [Suspect]
     Active Substance: VINDESINE
     Indication: Non-Hodgkin^s lymphoma
     Dosage: 4 CYCLES OF R-ACVBP
     Route: 065
  8. PREDNISONE [Suspect]
     Active Substance: PREDNISONE
     Indication: Non-Hodgkin^s lymphoma
     Dosage: 4 CYCLES OF R-ACVBP
     Route: 065
  9. RITUXIMAB [Suspect]
     Active Substance: RITUXIMAB
     Indication: Non-Hodgkin^s lymphoma
     Dosage: 4 CYCLES OF R-ACVBP
     Route: 065

REACTIONS (2)
  - Abortion spontaneous [Unknown]
  - Drug exposure before pregnancy [Unknown]
